FAERS Safety Report 4354723-3 (Version None)
Quarter: 2004Q2

REPORT INFORMATION
  Report Type: 
  Country: None (occurrence: None)
  Receive Date: 20040503
  Receipt Date: 20040427
  Transmission Date: 20050107
  Serious: Yes (Hospitalization, Other)
  Sender: FDA-Public Use
  Company Number: 2004210676US

PATIENT
  Age: 24 Year

DRUGS (1)
  1. DIPENTUM [Suspect]
     Dates: start: 20040415, end: 20040422

REACTIONS (1)
  - PANCREATITIS [None]
